FAERS Safety Report 24179456 (Version 1)
Quarter: 2024Q3

REPORT INFORMATION
  Report Type: Spontaneous
  Country: US (occurrence: US)
  Receive Date: 20240806
  Receipt Date: 20240806
  Transmission Date: 20241017
  Serious: No
  Sender: PFIZER
  Company Number: US-SEATTLE GENETICS-2024SGN05381

PATIENT
  Age: 58 Year
  Sex: Female

DRUGS (3)
  1. TUKYSA [Suspect]
     Active Substance: TUCATINIB
     Indication: Neoplasm malignant
     Dosage: 150 MG
  2. TUKYSA [Suspect]
     Active Substance: TUCATINIB
     Dosage: 50 MG
     Dates: end: 202405
  3. TUKYSA [Suspect]
     Active Substance: TUCATINIB
     Dosage: 150MG, 1 TABLET TWICE A DAY, 50MG 1 TABLET TWICE A DAY

REACTIONS (3)
  - Cholelithiasis [Unknown]
  - Laboratory test abnormal [Unknown]
  - Off label use [Unknown]
